FAERS Safety Report 10081971 (Version 1)
Quarter: 2014Q2

REPORT INFORMATION
  Report Type: Spontaneous
  Country: US (occurrence: None)
  Receive Date: 20140415
  Receipt Date: 20140415
  Transmission Date: 20141212
  Serious: No
  Sender: FDA-Public Use
  Company Number: None

PATIENT
  Age: 60 Year
  Sex: Female
  Weight: 66.68 kg

DRUGS (3)
  1. LIOTHYRONINE [Suspect]
     Indication: THYROID CANCER
     Route: 048
     Dates: start: 20140407, end: 20140414
  2. LIOTHYRONINE [Suspect]
     Indication: POST PROCEDURAL HYPOTHYROIDISM
     Route: 048
     Dates: start: 20140407, end: 20140414
  3. LEVOTHYROXINE [Concomitant]

REACTIONS (3)
  - Nausea [None]
  - Headache [None]
  - Product substitution issue [None]
